FAERS Safety Report 6914637-9 (Version None)
Quarter: 2010Q3

REPORT INFORMATION
  Report Type: 
  Country: None (occurrence: None)
  Receive Date: 20100809
  Receipt Date: 20100730
  Transmission Date: 20110219
  Serious: Yes (Disabling, Other)
  Sender: FDA-Public Use
  Company Number: JP-MERCK-1006USA00668

PATIENT
  Age: 36 Year
  Sex: Female
  Weight: 61 kg

DRUGS (2)
  1. HYZAAR [Suspect]
     Indication: HYPERTENSION
     Route: 048
     Dates: start: 20091001, end: 20100525
  2. HYZAAR [Suspect]
     Indication: RENAL FAILURE CHRONIC
     Route: 048
     Dates: start: 20091001, end: 20100525

REACTIONS (5)
  - DRUG EXPOSURE DURING PREGNANCY [None]
  - HYPERTENSION [None]
  - OLIGOHYDRAMNIOS [None]
  - PREMATURE LABOUR [None]
  - RENAL FAILURE [None]
